FAERS Safety Report 21592306 (Version 1)
Quarter: 2022Q4

REPORT INFORMATION
  Report Type: Spontaneous
  Country: US (occurrence: None)
  Receive Date: 20221113
  Receipt Date: 20221113
  Transmission Date: 20230112
  Serious: No
  Sender: FDA-Public Use
  Company Number: None

PATIENT
  Age: 36 Year
  Sex: Female
  Weight: 69.75 kg

DRUGS (9)
  1. FAMOTIDINE [Suspect]
     Active Substance: FAMOTIDINE
     Indication: Reflux laryngitis
  2. VYVANSE [Concomitant]
     Active Substance: LISDEXAMFETAMINE DIMESYLATE
  3. PROAIR HFA [Concomitant]
     Active Substance: ALBUTEROL SULFATE
  4. ADVAIR HFA [Concomitant]
     Active Substance: FLUTICASONE PROPIONATE\SALMETEROL XINAFOATE
  5. Prenatal Multivitamin [Concomitant]
  6. DIETARY SUPPLEMENT [Concomitant]
     Active Substance: DIETARY SUPPLEMENT
  7. Ginger/Turmeric [Concomitant]
  8. L-Arginine [Concomitant]
  9. PYRIDOXINE HYDROCHLORIDE [Concomitant]
     Active Substance: PYRIDOXINE HYDROCHLORIDE

REACTIONS (15)
  - Drug ineffective [None]
  - Hyperchlorhydria [None]
  - Burning sensation [None]
  - Condition aggravated [None]
  - Gastrooesophageal reflux disease [None]
  - Regurgitation [None]
  - Secretion discharge [None]
  - Poor quality sleep [None]
  - Asthma [None]
  - Cough [None]
  - Wheezing [None]
  - Sinus headache [None]
  - Paranasal sinus discomfort [None]
  - Paranasal sinus inflammation [None]
  - Product quality issue [None]
